FAERS Safety Report 8282449-2 (Version None)
Quarter: 2012Q2

REPORT INFORMATION
  Report Type: 
  Country: None (occurrence: None)
  Receive Date: 20120413
  Receipt Date: 20120412
  Transmission Date: 20120825
  Serious: Yes (Hospitalization, Other)
  Sender: FDA-Public Use
  Company Number: US-PFIZER INC-2012005625

PATIENT
  Sex: Female

DRUGS (2)
  1. LIPITOR [Suspect]
     Dosage: UNK
  2. PRAVASTATIN [Suspect]
     Dosage: UNK

REACTIONS (4)
  - MUSCLE SPASMS [None]
  - ABASIA [None]
  - CARDIAC DISORDER [None]
  - PAIN IN EXTREMITY [None]
